FAERS Safety Report 21469036 (Version 2)
Quarter: 2023Q1

REPORT INFORMATION
  Report Type: Spontaneous
  Country: DE (occurrence: DE)
  Receive Date: 20221018
  Receipt Date: 20230112
  Transmission Date: 20230418
  Serious: Yes (Hospitalization, Other)
  Sender: FDA-Public Use
  Company Number: DE-SA-SAC20220412000810

PATIENT
  Age: 53 Year
  Weight: 63 kg

DRUGS (2)
  1. AUBAGIO [Suspect]
     Active Substance: TERIFLUNOMIDE
     Indication: Multiple sclerosis
     Dosage: 14000 MG, QD
     Route: 048
     Dates: start: 20170516
  2. AUBAGIO [Suspect]
     Active Substance: TERIFLUNOMIDE
     Dosage: 14 MG, QD
     Route: 048

REACTIONS (6)
  - Neoplasm malignant [Unknown]
  - Drug-induced liver injury [Unknown]
  - Surgery [Unknown]
  - Breast neoplasm [Unknown]
  - Hepatic enzyme increased [Recovered/Resolved]
  - Product use issue [Unknown]

NARRATIVE: CASE EVENT DATE: 20170516
